FAERS Safety Report 11363017 (Version 1)
Quarter: 2015Q3

REPORT INFORMATION
  Report Type: Spontaneous
  Country: DE (occurrence: None)
  Receive Date: 20150807
  Receipt Date: 20150807
  Transmission Date: 20151125
  Serious: Yes (Hospitalization)
  Sender: FDA-Public Use
  Company Number: CO-ZO-DE-2015-043

PATIENT
  Age: 53 Year
  Sex: Male
  Weight: 97 kg

DRUGS (3)
  1. ZONEGRAN [Suspect]
     Active Substance: ZONISAMIDE
     Indication: EPILEPSY
     Route: 048
     Dates: start: 201504, end: 2015
  2. MIRTAZAPIN (UNKNOWN) (MIRTAZAPINE) [Concomitant]
  3. VALSARTAN (UNKNOW) (VALSARTAN) [Concomitant]

REACTIONS (3)
  - Psychotic disorder [None]
  - Physical assault [None]
  - Delusional perception [None]

NARRATIVE: CASE EVENT DATE: 20150520
